FAERS Safety Report 25268577 (Version 1)
Quarter: 2025Q2

REPORT INFORMATION
  Report Type: Report from Study
  Country: ZA (occurrence: ZA)
  Receive Date: 20250505
  Receipt Date: 20250505
  Transmission Date: 20250717
  Serious: Yes (Death)
  Sender: ROCHE
  Company Number: ZA-ROCHE-3525868

PATIENT
  Age: 65 Year
  Sex: Female

DRUGS (1)
  1. OCREVUS [Suspect]
     Active Substance: OCRELIZUMAB
     Indication: Relapsing-remitting multiple sclerosis
     Dosage: THERE AFTER 600MG EVERY 6 MONTHS
     Route: 042
     Dates: start: 20221005

REACTIONS (9)
  - Spinal disorder [Unknown]
  - Intervertebral disc space narrowing [Unknown]
  - Intervertebral disc protrusion [Unknown]
  - Vertebral foraminal stenosis [Unknown]
  - Radiculopathy [Unknown]
  - Spinal stenosis [Unknown]
  - Vertebral osteophyte [Unknown]
  - Facet joint syndrome [Unknown]
  - Death [Fatal]

NARRATIVE: CASE EVENT DATE: 20241001
